FAERS Safety Report 6123960-X (Version None)
Quarter: 2009Q1

REPORT INFORMATION
  Report Type: 
  Country: None (occurrence: None)
  Receive Date: 20090318
  Receipt Date: 20090318
  Transmission Date: 20090719
  Serious: Yes (Disabling, Other)
  Sender: FDA-Public Use
  Company Number: None

PATIENT
  Age: 24 Year
  Sex: Female
  Weight: 158.759 kg

DRUGS (2)
  1. GEODON [Suspect]
     Indication: SCHIZOAFFECTIVE DISORDER
     Dosage: 2 CAPSULES -160 MG- ONCE DAILY PO
     Route: 048
     Dates: start: 20031001, end: 20080813
  2. GEODON [Suspect]
     Indication: SCHIZOAFFECTIVE DISORDER
     Dosage: 1 CAPSULE -40 MG- ONCE DAILY PO
     Route: 048
     Dates: start: 20031001, end: 20080813

REACTIONS (6)
  - ACTIVITIES OF DAILY LIVING IMPAIRED [None]
  - BRONCHITIS [None]
  - DRUG DOSE OMISSION [None]
  - DRUG WITHDRAWAL SYNDROME [None]
  - PYREXIA [None]
  - TYPE 2 DIABETES MELLITUS [None]
